FAERS Safety Report 18816670 (Version 1)
Quarter: 2021Q1

REPORT INFORMATION
  Report Type: Spontaneous
  Country: ES (occurrence: ES)
  Receive Date: 20210201
  Receipt Date: 20210201
  Transmission Date: 20210419
  Serious: Yes (Hospitalization, Other)
  Sender: FDA-Public Use
  Company Number: ES-NOVEN PHARMACEUTICALS, INC.-2021ES000623

PATIENT
  Age: 42 Year
  Sex: Female
  Weight: 42 kg

DRUGS (2)
  1. LIDOCAINE. [Suspect]
     Active Substance: LIDOCAINE
     Indication: LOCAL ANAESTHESIA
     Dosage: HALF AMPOULE, UNK
     Route: 058
  2. LIDOCAINE. [Suspect]
     Active Substance: LIDOCAINE
     Indication: CENTRAL VENOUS CATHETERISATION
     Dosage: 2% (10 ML AMPOULE), UNK
     Route: 058

REACTIONS (11)
  - Joint hyperextension [Unknown]
  - Local anaesthetic systemic toxicity [Unknown]
  - Dry mouth [Unknown]
  - Sinus tachycardia [Recovered/Resolved]
  - Paraesthesia oral [Unknown]
  - Blood pressure increased [Recovered/Resolved]
  - Seizure [Recovered/Resolved]
  - Pain [Unknown]
  - Pupils unequal [Recovered/Resolved]
  - Muscle rigidity [Unknown]
  - Loss of consciousness [Unknown]
